FAERS Safety Report 21504580 (Version 3)
Quarter: 2022Q4

REPORT INFORMATION
  Report Type: Spontaneous
  Country: DE (occurrence: DE)
  Receive Date: 20221025
  Receipt Date: 20221213
  Transmission Date: 20230113
  Serious: Yes (Other)
  Sender: FDA-Public Use
  Company Number: DE-PFIZER INC-202201211792

PATIENT
  Age: 34 Year
  Sex: Male
  Weight: 52 kg

DRUGS (5)
  1. PAXLOVID [Suspect]
     Active Substance: NIRMATRELVIR\RITONAVIR
     Indication: COVID-19 treatment
     Dosage: 3 DF, 2X/DAY
     Route: 048
     Dates: start: 20221006, end: 20221011
  2. RAMIPRIL [Concomitant]
     Active Substance: RAMIPRIL
     Indication: Cardiac failure
     Dosage: 10 MG, 1X/DAY
     Dates: start: 2004
  3. BISOPROLOL FUMARATE [Concomitant]
     Active Substance: BISOPROLOL FUMARATE
     Indication: Cardiac failure
     Dosage: 5 MG, 1X/DAY
     Dates: start: 2005
  4. SERTRALIN HEUMANN [Concomitant]
     Indication: Depression
     Dosage: 50 MG, 1X/DAY
     Dates: start: 201905
  5. PREDNISOLONE [Concomitant]
     Active Substance: PREDNISOLONE
     Indication: Eosinophilia
     Dosage: 5 - 10 MG, 1X/DAY
     Dates: start: 201809

REACTIONS (5)
  - Pneumonia bacterial [Recovered/Resolved]
  - Pneumonia aspiration [Not Recovered/Not Resolved]
  - Superinfection bacterial [Unknown]
  - Diarrhoea [Recovered/Resolved]
  - Insomnia [Recovered/Resolved]

NARRATIVE: CASE EVENT DATE: 20221007
